FAERS Safety Report 9355827 (Version 3)
Quarter: 2013Q3

REPORT INFORMATION
  Report Type: Report from Study
  Country: US (occurrence: US)
  Receive Date: 20130619
  Receipt Date: 20130909
  Transmission Date: 20140515
  Serious: Yes (Hospitalization)
  Sender: FDA-Public Use
  Company Number: US-ACTELION-A-NJ2013-84794

PATIENT
  Age: 79 Year
  Sex: Female

DRUGS (3)
  1. VENTAVIS [Suspect]
     Indication: PULMONARY ARTERIAL HYPERTENSION
     Dosage: UNK
     Route: 055
     Dates: start: 20130403
  2. ADCIRCA [Concomitant]
  3. COUMADIN [Concomitant]
     Dosage: UNK

REACTIONS (3)
  - Arthropathy [Unknown]
  - Wound infection [Unknown]
  - Skin ulcer [Unknown]
